FAERS Safety Report 4596229-2 (Version None)
Quarter: 2005Q1

REPORT INFORMATION
  Report Type: 
  Country: None (occurrence: None)
  Receive Date: 20050302
  Receipt Date: 20050210
  Transmission Date: 20050727
  Serious: Yes (Life-Threatening, Other)
  Sender: FDA-Public Use
  Company Number: 2004-07-0539

PATIENT
  Age: 74 Year
  Sex: Female
  Weight: 52.7 kg

DRUGS (4)
  1. ASPIRIN [Suspect]
     Route: 048
  2. INTEGRILIN [Suspect]
     Indication: THERAPEUTIC PROCEDURE
     Route: 042
     Dates: start: 20040623, end: 20040623
  3. HEPARIN [Suspect]
     Indication: THERAPEUTIC PROCEDURE
     Route: 042
     Dates: start: 20040623
  4. SIMVASTATIN [Concomitant]
     Route: 065

REACTIONS (44)
  - ACUTE RESPIRATORY FAILURE [None]
  - ASTHENIA [None]
  - ATRIAL FIBRILLATION [None]
  - BILIRUBIN CONJUGATED INCREASED [None]
  - BLOOD BILIRUBIN INCREASED [None]
  - BLOOD CALCIUM DECREASED [None]
  - BLOOD CREATINE PHOSPHOKINASE INCREASED [None]
  - BLOOD MAGNESIUM ABNORMAL [None]
  - BLOOD POTASSIUM DECREASED [None]
  - BLOOD SODIUM ABNORMAL [None]
  - BRADYCARDIA [None]
  - CARDIAC ARREST [None]
  - CONSTIPATION [None]
  - CREATININE RENAL CLEARANCE DECREASED [None]
  - DIARRHOEA [None]
  - DRY MOUTH [None]
  - DYSPHAGIA [None]
  - DYSPHONIA [None]
  - ERYTHEMA [None]
  - HAEMOPTYSIS [None]
  - HYPERGLYCAEMIA [None]
  - HYPERVOLAEMIA [None]
  - HYPOTENSION [None]
  - HYPOXIA [None]
  - MALNUTRITION [None]
  - METABOLIC ACIDOSIS [None]
  - METABOLIC ENCEPHALOPATHY [None]
  - MYOPATHY STEROID [None]
  - ORAL CANDIDIASIS [None]
  - OXYGEN SATURATION DECREASED [None]
  - PAIN IN EXTREMITY [None]
  - PAIN IN JAW [None]
  - PLATELET COUNT ABNORMAL [None]
  - PLEURAL EFFUSION [None]
  - PNEUMONIA ASPIRATION [None]
  - PNEUMOTHORAX [None]
  - PULMONARY HAEMORRHAGE [None]
  - PULMONARY OEDEMA [None]
  - RENAL FUNCTION TEST ABNORMAL [None]
  - RESPIRATORY DISORDER [None]
  - SCLERAL DISCOLOURATION [None]
  - THROMBOCYTHAEMIA [None]
  - THROMBOCYTOPENIA [None]
  - TROPONIN I INCREASED [None]
